FAERS Safety Report 7444306-0 (Version None)
Quarter: 2011Q2

REPORT INFORMATION
  Report Type: 
  Country: None (occurrence: None)
  Receive Date: 20110429
  Receipt Date: 20110420
  Transmission Date: 20111010
  Serious: Yes (Other)
  Sender: FDA-Public Use
  Company Number: FR-JNJFOC-20110409620

PATIENT
  Sex: Male
  Weight: 57 kg

DRUGS (5)
  1. TRUVADA [Suspect]
     Indication: HIV INFECTION
     Dosage: 200/245
     Route: 065
  2. TMC114 [Suspect]
     Indication: HIV INFECTION
     Route: 048
  3. ATARAX [Concomitant]
     Indication: ANXIETY
  4. NORVIR [Suspect]
     Indication: HIV INFECTION
     Route: 065
  5. ASPIRIN C [Concomitant]
     Indication: MYALGIA

REACTIONS (1)
  - BLOOD CREATINE PHOSPHOKINASE INCREASED [None]
